FAERS Safety Report 15978947 (Version 2)
Quarter: 2019Q1

REPORT INFORMATION
  Report Type: Spontaneous
  Country: IE (occurrence: IE)
  Receive Date: 20190219
  Receipt Date: 20190312
  Transmission Date: 20190418
  Serious: Yes (Death, Hospitalization)
  Sender: FDA-Public Use
  Company Number: IE-009507513-1902IRL005391

PATIENT
  Age: 66 Year
  Sex: Female

DRUGS (11)
  1. KEYTRUDA [Suspect]
     Active Substance: PEMBROLIZUMAB
     Dosage: BN: 7302616005 EXP: 31/08/2019
     Route: 042
     Dates: start: 20181017
  2. KEYTRUDA [Suspect]
     Active Substance: PEMBROLIZUMAB
     Dosage: UNK
  3. KEYTRUDA [Suspect]
     Active Substance: PEMBROLIZUMAB
     Dosage: BN: 7SNL82402 EXP: 30/11/2018
     Route: 042
     Dates: start: 20180725
  4. ENSURE [Concomitant]
     Active Substance: AMINO ACIDS\DEXTROSE\ELECTROLYTES NOS\SOYBEAN OIL\VITAMINS
     Indication: NUTRITIONAL SUPPLEMENTATION
     Dates: start: 201811
  5. KEYTRUDA [Suspect]
     Active Substance: PEMBROLIZUMAB
     Dosage: 200 MILLIGRAM, Q3W
     Route: 042
  6. KEYTRUDA [Suspect]
     Active Substance: PEMBROLIZUMAB
     Indication: LUNG NEOPLASM MALIGNANT
     Dosage: BN: 7302601012 EXP: 31/12/2018
     Route: 042
     Dates: start: 20180905
  7. KEYTRUDA [Suspect]
     Active Substance: PEMBROLIZUMAB
     Dosage: BN: 7302615006 EXP: 31/08/2019
     Route: 042
     Dates: start: 20181121
  8. KEYTRUDA [Suspect]
     Active Substance: PEMBROLIZUMAB
     Dosage: BN 7SNL82201 EXP: 31/10/2018
     Route: 042
     Dates: start: 20180404
  9. KEYTRUDA [Suspect]
     Active Substance: PEMBROLIZUMAB
     Dosage: BN: 7302616005 EXP: 31/08/2019
     Route: 042
     Dates: start: 20180926
  10. KEYTRUDA [Suspect]
     Active Substance: PEMBROLIZUMAB
     Dosage: BN: 7302601012 EXP: 31/12/2018
     Route: 042
     Dates: start: 20180815
  11. KEYTRUDA [Suspect]
     Active Substance: PEMBROLIZUMAB
     Dosage: BN: 7SNL82402 EXP: 30/11/2018
     Route: 042
     Dates: start: 20180404

REACTIONS (13)
  - Acidosis [Fatal]
  - Hypothermia [Fatal]
  - Renal tubular necrosis [Fatal]
  - Malaise [Fatal]
  - Acute kidney injury [Fatal]
  - Vomiting [Fatal]
  - Diabetic ketoacidosis [Fatal]
  - Hypophagia [Fatal]
  - Nausea [Fatal]
  - Unresponsive to stimuli [Fatal]
  - Renal failure [Fatal]
  - Loss of consciousness [Fatal]
  - Rhabdomyolysis [Fatal]

NARRATIVE: CASE EVENT DATE: 20181130
